FAERS Safety Report 9803540 (Version 1)
Quarter: 2014Q1

REPORT INFORMATION
  Report Type: Spontaneous
  Country: US (occurrence: US)
  Receive Date: 20140108
  Receipt Date: 20140108
  Transmission Date: 20141002
  Serious: No
  Sender: FDA-Public Use
  Company Number: US-GLAXOSMITHKLINE-A1005708A

PATIENT
  Age: 70 Year
  Sex: Female

DRUGS (1)
  1. LOVAZA [Suspect]
     Indication: ARTHRALGIA
     Dosage: 2CAP TWICE PER DAY
     Route: 048
     Dates: start: 2009

REACTIONS (1)
  - Therapeutic response unexpected [Unknown]
